FAERS Safety Report 10081119 (Version 1)
Quarter: 2014Q2

REPORT INFORMATION
  Report Type: Spontaneous
  Country: PE (occurrence: PE)
  Receive Date: 20140416
  Receipt Date: 20140416
  Transmission Date: 20141212
  Serious: Yes (Other)
  Sender: FDA-Public Use
  Company Number: PE-PFIZER INC-2014101029

PATIENT
  Age: 95 Year
  Sex: Male

DRUGS (1)
  1. NORVASTOR [Suspect]
     Dosage: [AMLODIPINE BESILATE 5 MG] /[ATORVASTATIN CALCIUM 10 MG]
     Route: 048

REACTIONS (4)
  - Neoplasm [Unknown]
  - Arterial rupture [Unknown]
  - Blood pressure increased [Not Recovered/Not Resolved]
  - Dizziness [Not Recovered/Not Resolved]
